FAERS Safety Report 5897222-X (Version None)
Quarter: 2008Q3

REPORT INFORMATION
  Report Type: 
  Country: None (occurrence: None)
  Receive Date: 20080923
  Receipt Date: 20080910
  Transmission Date: 20090109
  Serious: No
  Sender: FDA-Public Use
  Company Number: B0537724A

PATIENT
  Age: 49 Year
  Sex: Female

DRUGS (13)
  1. PAROXETINE HCL [Suspect]
     Indication: ANXIETY
  2. FENTANYL [Suspect]
     Indication: ANAESTHESIA
  3. METHYLENE BLUE (FORMULATION UNKNOWN) (METHYLENE BLUE) [Suspect]
     Indication: HYPOTENSION
  4. CLONAZEPAM [Concomitant]
  5. QUETIAPINE FUMARATE [Concomitant]
  6. DIAZEPAM [Concomitant]
  7. MIDAZOLAM [Concomitant]
  8. PROPOFOL [Concomitant]
  9. ROCURONIUM BROMIDE [Concomitant]
  10. SEVOFLURANE [Concomitant]
  11. PHENYLEPHRINE HCL [Concomitant]
  12. VASOPRESSIN [Concomitant]
  13. NORADRENALINE [Concomitant]

REACTIONS (6)
  - DRUG INTERACTION [None]
  - DRUG TOXICITY [None]
  - HYPOTENSION [None]
  - MITRAL VALVE REPLACEMENT [None]
  - SEROTONIN SYNDROME [None]
  - TOXIC ENCEPHALOPATHY [None]
